FAERS Safety Report 7407652-2 (Version None)
Quarter: 2011Q2

REPORT INFORMATION
  Report Type: 
  Country: None (occurrence: None)
  Receive Date: 20110405
  Receipt Date: 20110321
  Transmission Date: 20111010
  Serious: Yes (Hospitalization)
  Sender: FDA-Public Use
  Company Number: 2011MA002679

PATIENT
  Age: 47 Year
  Sex: Female

DRUGS (3)
  1. TRAMADOL HCL [Suspect]
     Dosage: 50 MG, Q8, PO
     Route: 048
  2. LOSARTAN POTASSIUM/HYDROCHLOROTHIAZIDE [Concomitant]
  3. VENLAFAXINE HCL [Concomitant]

REACTIONS (6)
  - BREAKTHROUGH PAIN [None]
  - SALPINGO-OOPHORECTOMY BILATERAL [None]
  - DRUG DOSE OMISSION [None]
  - FEELING HOT [None]
  - FLUSHING [None]
  - HYSTERECTOMY [None]
